FAERS Safety Report 8584428-4 (Version None)
Quarter: 2012Q3

REPORT INFORMATION
  Report Type: 
  Country: None (occurrence: None)
  Receive Date: 20120810
  Receipt Date: 20120803
  Transmission Date: 20120928
  Serious: Yes (Life-Threatening, Hospitalization)
  Sender: FDA-Public Use
  Company Number: US-009507513-1208USA003018

PATIENT

DRUGS (2)
  1. EMEND [Suspect]
     Indication: NAUSEA
     Route: 048
  2. EMEND [Suspect]
     Indication: VOMITING

REACTIONS (2)
  - VOMITING [None]
  - NAUSEA [None]
